FAERS Safety Report 16891124 (Version 2)
Quarter: 2019Q4

REPORT INFORMATION
  Report Type: Report from Study
  Country: US (occurrence: US)
  Receive Date: 20191007
  Receipt Date: 20191230
  Transmission Date: 20200122
  Serious: No
  Sender: FDA-Public Use
  Company Number: US-009507513-1910USA002473

PATIENT
  Age: 28 Year
  Sex: Female
  Weight: 54.88 kg

DRUGS (1)
  1. IMPLANON [Suspect]
     Active Substance: ETONOGESTREL
     Indication: CONTRACEPTION
     Dosage: ONE ROD EVERY THREE YEARS
     Route: 058
     Dates: start: 20190116, end: 2019

REACTIONS (4)
  - Device expulsion [Recovered/Resolved]
  - Implant site pain [Not Recovered/Not Resolved]
  - Device deployment issue [Recovered/Resolved]
  - Implant site erythema [Not Recovered/Not Resolved]

NARRATIVE: CASE EVENT DATE: 2019
